FAERS Safety Report 6172496-9 (Version None)
Quarter: 2009Q2

REPORT INFORMATION
  Report Type: 
  Country: None (occurrence: None)
  Receive Date: 20090427
  Receipt Date: 20090416
  Transmission Date: 20091009
  Serious: Yes (Other)
  Sender: FDA-Public Use
  Company Number: 250521

PATIENT
  Age: 19 Year
  Sex: Male
  Weight: 70 kg

DRUGS (2)
  1. (ETHANOL) [Suspect]
     Indication: CHEMICAL POISONING
     Dosage: SEE IMAGE
  2. FOMEPIZOLE [Suspect]
     Indication: CHEMICAL POISONING
     Dosage: 900 MG, INTRAVENOUS
     Route: 042

REACTIONS (5)
  - AGITATION [None]
  - DRUG INTERACTION [None]
  - HAEMODIALYSIS [None]
  - OFF LABEL USE [None]
  - SOMNOLENCE [None]
